FAERS Safety Report 10080661 (Version 1)
Quarter: 2014Q2

REPORT INFORMATION
  Report Type: Spontaneous
  Country: IN (occurrence: None)
  Receive Date: 20140414
  Receipt Date: 20140414
  Transmission Date: 20141212
  Serious: Yes (Other)
  Sender: FDA-Public Use
  Company Number: 2014-PEL-000016

PATIENT
  Age: 16 Year
  Sex: Female
  Weight: 37 kg

DRUGS (11)
  1. SEVOFLURANE [Suspect]
     Indication: INDUCTION OF ANAESTHESIA
     Route: 055
  2. ANTIBIOTICS [Concomitant]
  3. BLOOD CELLS, PACKED HUMAN(BLOOD CELLS, PACKED HUMAN) [Concomitant]
  4. LOCAL ANESTHETICS [Concomitant]
  5. ALPRAZOLAM(ALPRAZOLAM) [Concomitant]
  6. RANITIDINE(RANITIDINE) [Concomitant]
  7. ODANSETRON(ODANSETRON) [Concomitant]
  8. GLYCOPYRROLATE/00196201/(GLYCOPYRRONIUM) [Concomitant]
  9. OXYGEN(OXYGEN) [Concomitant]
  10. NITROUS OXIDE(NITROUS OXIDE) [Concomitant]
  11. ATRACURIUM(ATRACURIUM) [Concomitant]

REACTIONS (5)
  - Pulmonary oedema [None]
  - Bradycardia [None]
  - Hypotension [None]
  - Tachycardia [None]
  - Procedural haemorrhage [None]
